FAERS Safety Report 6801010-7 (Version None)
Quarter: 2010Q2

REPORT INFORMATION
  Report Type: 
  Country: None (occurrence: None)
  Receive Date: 20100629
  Receipt Date: 20100611
  Transmission Date: 20101027
  Serious: Yes (Other)
  Sender: FDA-Public Use
  Company Number: PHHY2010AR38094

PATIENT
  Sex: Male

DRUGS (1)
  1. CLOZAPINE [Suspect]
     Indication: BIPOLAR I DISORDER
     Dosage: 300 TO 400 MG DAILY

REACTIONS (3)
  - NON-HODGKIN'S LYMPHOMA [None]
  - SYNOVIAL CYST [None]
  - TENDON SHEATH LESION EXCISION [None]
